FAERS Safety Report 8788039 (Version 2)
Quarter: 2015Q2

REPORT INFORMATION
  Report Type: Report from Study
  Country: US (occurrence: US)
  Receive Date: 20120915
  Receipt Date: 20150629
  Transmission Date: 20150821
  Serious: Yes (Death, Hospitalization)
  Sender: FDA-Public Use
  Company Number: US-ROCHE-1126836

PATIENT
  Sex: Male
  Weight: 106.36 kg

DRUGS (21)
  1. IPILIMUMAB [Concomitant]
     Active Substance: IPILIMUMAB
     Dosage: WEEK 4 INTRAVENUS OVER 90 MIN
     Route: 065
  2. CARBOPLATIN. [Concomitant]
     Active Substance: CARBOPLATIN
  3. TAXOL [Concomitant]
     Active Substance: PACLITAXEL
  4. GEMFIBROZIL. [Concomitant]
     Active Substance: GEMFIBROZIL
     Route: 048
  5. ANZEMET [Concomitant]
     Active Substance: DOLASETRON MESYLATE
     Route: 042
  6. TAXOTERE [Concomitant]
     Active Substance: DOCETAXEL
     Route: 065
  7. DECADRON [Concomitant]
     Active Substance: DEXAMETHASONE
  8. DEXAMETHASONE. [Concomitant]
     Active Substance: DEXAMETHASONE
     Dosage: 6 MG MORNING AND 2 MG EVENING
     Route: 048
  9. SOLU-MEDROL [Concomitant]
     Active Substance: METHYLPREDNISOLONE SODIUM SUCCINATE
     Dosage: UNTIL DIAHRREA IMPROVE
     Route: 042
  10. AVASTIN [Suspect]
     Active Substance: BEVACIZUMAB
     Indication: MALIGNANT MELANOMA
     Route: 065
     Dates: start: 20091005
  11. IPILIMUMAB [Concomitant]
     Active Substance: IPILIMUMAB
     Dosage: RECEIVED AS A PART OF PROTOCOL  CA 184-045 (NON-ROCHE STUDY)? 4 DOSES, WEEK 1 INTRAVENUS OVER 90 MIN
     Route: 065
  12. CRESTOR [Concomitant]
     Active Substance: ROSUVASTATIN CALCIUM
     Route: 048
  13. IPILIMUMAB [Concomitant]
     Active Substance: IPILIMUMAB
     Dosage: WEEK 10 INTRAVENUS OVER 90 MIN
     Route: 065
  14. KYTRIL [Concomitant]
     Active Substance: GRANISETRON HYDROCHLORIDE
     Route: 042
  15. IPILIMUMAB [Concomitant]
     Active Substance: IPILIMUMAB
     Dosage: WEEK 7 INTRAVENUS OVER 90 MIN
     Route: 065
  16. DEXAMETHASONE. [Concomitant]
     Active Substance: DEXAMETHASONE
     Route: 048
  17. KEPPRA [Concomitant]
     Active Substance: LEVETIRACETAM
     Route: 048
  18. DECADRON [Concomitant]
     Active Substance: DEXAMETHASONE
     Dosage: DAY 1 AND DAY 8
     Route: 042
  19. AVASTIN [Suspect]
     Active Substance: BEVACIZUMAB
     Route: 065
  20. GEMZAR [Concomitant]
     Active Substance: GEMCITABINE HYDROCHLORIDE
     Route: 065
  21. NEULASTA [Concomitant]
     Active Substance: PEGFILGRASTIM
     Route: 058

REACTIONS (11)
  - Death [Fatal]
  - Diarrhoea [Unknown]
  - Pyrexia [Unknown]
  - Dysarthria [Unknown]
  - Nephrolithiasis [Unknown]
  - Metastases to central nervous system [Unknown]
  - Generalised non-convulsive epilepsy [Unknown]
  - Asthenia [Unknown]
  - Disease progression [Unknown]
  - Metastases to lymph nodes [Unknown]
  - Fatigue [Unknown]
